FAERS Safety Report 6192693-6 (Version None)
Quarter: 2009Q2

REPORT INFORMATION
  Report Type: 
  Country: None (occurrence: None)
  Receive Date: 20090518
  Receipt Date: 20090508
  Transmission Date: 20091009
  Serious: Yes (Other)
  Sender: FDA-Public Use
  Company Number: US-ROCHE-632216

PATIENT
  Age: 74 Year
  Sex: Female

DRUGS (1)
  1. BONIVA [Suspect]
     Indication: OSTEOPOROSIS
     Route: 048
     Dates: start: 20080501

REACTIONS (4)
  - BLADDER PROLAPSE [None]
  - INFREQUENT BOWEL MOVEMENTS [None]
  - URINARY TRACT INFECTION [None]
  - VOMITING [None]
